FAERS Safety Report 12422215 (Version 3)
Quarter: 2016Q2

REPORT INFORMATION
  Report Type: Spontaneous
  Country: TR (occurrence: TR)
  Receive Date: 20160601
  Receipt Date: 20160629
  Transmission Date: 20160815
  Serious: Yes (Death, Hospitalization, Other)
  Sender: FDA-Public Use
  Company Number: PHHY2016TR074741

PATIENT
  Age: 61 Year
  Sex: Female

DRUGS (2)
  1. VOTRIENT [Suspect]
     Active Substance: PAZOPANIB HYDROCHLORIDE
     Indication: SOFT TISSUE SARCOMA
  2. VOTRIENT [Suspect]
     Active Substance: PAZOPANIB HYDROCHLORIDE
     Indication: RENAL CELL CARCINOMA
     Dosage: 800 MG, QD
     Route: 048
     Dates: start: 20151201, end: 20160301

REACTIONS (17)
  - Cough [Fatal]
  - Pulmonary oedema [Fatal]
  - Oedema peripheral [Fatal]
  - Ascites [Fatal]
  - Cardiac failure acute [Fatal]
  - Hypertension [Fatal]
  - Cardiotoxicity [Unknown]
  - Ejection fraction decreased [Unknown]
  - Dyspnoea [Fatal]
  - Chest discomfort [Fatal]
  - Jugular vein distension [Fatal]
  - Palpitations [Fatal]
  - Decreased appetite [Fatal]
  - Fatigue [Fatal]
  - Nausea [Fatal]
  - Orthopnoea [Fatal]
  - Weight increased [Fatal]

NARRATIVE: CASE EVENT DATE: 20160301
